FAERS Safety Report 20131799 (Version 1)
Quarter: 2021Q4

REPORT INFORMATION
  Report Type: Spontaneous
  Country: US (occurrence: US)
  Receive Date: 20211130
  Receipt Date: 20211130
  Transmission Date: 20220303
  Serious: No
  Sender: FDA-Public Use
  Company Number: US-MYLANLABS-2021M1061128

PATIENT
  Sex: Female

DRUGS (1)
  1. LIDOCAINE PATCH [Suspect]
     Active Substance: LIDOCAINE
     Indication: Arthralgia
     Dosage: 5 PERCENT
     Route: 062

REACTIONS (4)
  - Product adhesion issue [Unknown]
  - Skin lesion [Unknown]
  - Pain [Recovering/Resolving]
  - Off label use [Unknown]
